FAERS Safety Report 8380128-4 (Version None)
Quarter: 2012Q2

REPORT INFORMATION
  Report Type: 
  Country: None (occurrence: None)
  Receive Date: 20120523
  Receipt Date: 20120514
  Transmission Date: 20120825
  Serious: Yes (Hospitalization)
  Sender: FDA-Public Use
  Company Number: US-JNJFOC-20120513548

PATIENT
  Age: 71 Year
  Sex: Female

DRUGS (2)
  1. XARELTO [Suspect]
     Indication: CEREBROVASCULAR ACCIDENT PROPHYLAXIS
     Route: 048
     Dates: end: 20120101
  2. XARELTO [Suspect]
     Indication: ATRIAL FIBRILLATION
     Route: 048
     Dates: end: 20120101

REACTIONS (7)
  - HAEMATOCRIT ABNORMAL [None]
  - BLOOD UREA ABNORMAL [None]
  - NAUSEA [None]
  - GASTROINTESTINAL HAEMORRHAGE [None]
  - VOMITING [None]
  - CREATININE RENAL CLEARANCE ABNORMAL [None]
  - HAEMOGLOBIN ABNORMAL [None]
